FAERS Safety Report 19151545 (Version 2)
Quarter: 2023Q2

REPORT INFORMATION
  Report Type: Spontaneous
  Country: US (occurrence: US)
  Receive Date: 20210419
  Receipt Date: 20230515
  Transmission Date: 20230722
  Serious: No
  Sender: FDA-Public Use
  Company Number: US-UCBSA-2020041311

PATIENT
  Age: 68 Year
  Sex: Male

DRUGS (5)
  1. NEUPRO [Suspect]
     Active Substance: ROTIGOTINE
     Indication: Restless legs syndrome
     Dosage: 1 MILLIGRAM, ONCE DAILY (QD)
     Dates: start: 20190501, end: 20190523
  2. NEUPRO [Suspect]
     Active Substance: ROTIGOTINE
     Dosage: 2 MILLIGRAM, ONCE DAILY (QD)
     Dates: start: 20190524, end: 20190613
  3. NEUPRO [Suspect]
     Active Substance: ROTIGOTINE
     Dosage: 3 MILLIGRAM, ONCE DAILY (QD)
     Dates: start: 20190614
  4. HORIZANT [Concomitant]
     Active Substance: GABAPENTIN ENACARBIL
     Indication: Restless legs syndrome
     Dosage: 300 MILLIGRAM, ONCE DAILY (QD)
     Route: 048
     Dates: start: 20200131
  5. METHADONE [Concomitant]
     Active Substance: METHADONE HYDROCHLORIDE
     Indication: Restless legs syndrome
     Dosage: 0.5 DOSAGE FORM, ONCE DAILY (QD)
     Route: 048
     Dates: start: 20200806

REACTIONS (1)
  - Product adhesion issue [Unknown]

NARRATIVE: CASE EVENT DATE: 20200803
